FAERS Safety Report 9104046 (Version 1)
Quarter: 2013Q1

REPORT INFORMATION
  Report Type: Spontaneous
  Country: US (occurrence: US)
  Receive Date: 20130219
  Receipt Date: 20130219
  Transmission Date: 20140127
  Serious: No
  Sender: FDA-Public Use
  Company Number: US-ASTRAZENECA-2013SE08880

PATIENT
  Age: 56 Year
  Sex: Female

DRUGS (2)
  1. METOPROLOL [Suspect]
     Dosage: GENERIC
     Route: 048
  2. TOPROL XL [Suspect]
     Route: 048

REACTIONS (5)
  - Drug intolerance [Unknown]
  - Anxiety [Unknown]
  - Tachycardia [Unknown]
  - Adverse event [Unknown]
  - Drug dose omission [Unknown]
